FAERS Safety Report 8042569-4 (Version None)
Quarter: 2012Q1

REPORT INFORMATION
  Report Type: 
  Country: None (occurrence: None)
  Receive Date: 20120112
  Receipt Date: 20120109
  Transmission Date: 20120608
  Serious: Yes (Hospitalization, Congenital Anomaly, Other)
  Sender: FDA-Public Use
  Company Number: US-PFIZER INC-2011288393

PATIENT
  Sex: Female
  Weight: 2.4 kg

DRUGS (4)
  1. KEFLEX [Concomitant]
     Indication: URINARY TRACT INFECTION
     Dosage: UNK
     Route: 064
     Dates: start: 20060216
  2. ZITHROMAX [Concomitant]
     Indication: CHLAMYDIAL INFECTION
     Dosage: UNK
     Route: 064
     Dates: start: 20060321
  3. ZOLOFT [Suspect]
     Dosage: UNK
     Route: 064
  4. MULTI-VITAMINS [Concomitant]
     Dosage: UNK
     Route: 064

REACTIONS (20)
  - AORTIC STENOSIS [None]
  - PULMONARY ARTERY DILATATION [None]
  - ANAEMIA NEONATAL [None]
  - CARDIOMEGALY [None]
  - ILEUS [None]
  - VENTRICULAR SEPTAL DEFECT [None]
  - TRANSPOSITION OF THE GREAT VESSELS [None]
  - COARCTATION OF THE AORTA [None]
  - DILATATION VENTRICULAR [None]
  - BICUSPID AORTIC VALVE [None]
  - MATERNAL EXPOSURE TIMING UNSPECIFIED [None]
  - ATRIAL SEPTAL DEFECT [None]
  - GASTROINTESTINAL FISTULA [None]
  - CARDIAC FAILURE CONGESTIVE [None]
  - PATENT DUCTUS ARTERIOSUS [None]
  - BUNDLE BRANCH BLOCK RIGHT [None]
  - RIGHT ATRIAL DILATATION [None]
  - TRICUSPID VALVE INCOMPETENCE [None]
  - NEONATAL RESPIRATORY DISTRESS SYNDROME [None]
  - RIGHT VENTRICULAR HYPERTROPHY [None]
